FAERS Safety Report 13995326 (Version 1)
Quarter: 2017Q3

REPORT INFORMATION
  Report Type: Report from Study
  Country: TW (occurrence: TW)
  Receive Date: 20170921
  Receipt Date: 20170921
  Transmission Date: 20171128
  Serious: Yes (Death)
  Sender: FDA-Public Use
  Company Number: TW-ROCHE-1946416

PATIENT

DRUGS (4)
  1. PREDNISOLONE. [Suspect]
     Active Substance: PREDNISOLONE
     Indication: PROPHYLAXIS AGAINST TRANSPLANT REJECTION
     Route: 065
  2. MYCOPHENOLATE MOFETIL. [Suspect]
     Active Substance: MYCOPHENOLATE MOFETIL
     Indication: PROPHYLAXIS AGAINST TRANSPLANT REJECTION
     Dosage: 500 MG TO 1000 MG
     Route: 065
  3. CYCLOSPORINE. [Suspect]
     Active Substance: CYCLOSPORINE
     Indication: PROPHYLAXIS AGAINST TRANSPLANT REJECTION
     Route: 065
  4. FK506 [Suspect]
     Active Substance: TACROLIMUS
     Indication: PROPHYLAXIS AGAINST TRANSPLANT REJECTION
     Route: 065

REACTIONS (24)
  - Abdominal pain upper [Unknown]
  - Diarrhoea [Unknown]
  - Insomnia [Unknown]
  - Herpes zoster [Unknown]
  - Vomiting [Unknown]
  - Cellulitis [Unknown]
  - Cytomegalovirus infection [Unknown]
  - Jaundice [Unknown]
  - Peptic ulcer [Unknown]
  - Nausea [Unknown]
  - Urinary tract infection [Unknown]
  - Renal abscess [Unknown]
  - Transitional cell carcinoma [Fatal]
  - Leukopenia [Unknown]
  - Tremor [Unknown]
  - Pneumonia [Unknown]
  - Abdominal pain [Unknown]
  - Pulmonary tuberculosis [Unknown]
  - Sepsis [Fatal]
  - Alopecia [Unknown]
  - Herpes simplex [Unknown]
  - Anaemia [Unknown]
  - Hepatocellular carcinoma [Fatal]
  - Dizziness [Unknown]
